FAERS Safety Report 7742408-2 (Version None)
Quarter: 2011Q3

REPORT INFORMATION
  Report Type: 
  Country: None (occurrence: None)
  Receive Date: 20110902
  Receipt Date: 20110524
  Transmission Date: 20111222
  Serious: Yes (Other)
  Sender: FDA-Public Use
  Company Number: 2011SP024467

PATIENT
  Sex: Female

DRUGS (1)
  1. NUVARING [Suspect]
     Indication: CONTRACEPTION
     Dosage: VAG
     Route: 067
     Dates: start: 20030101, end: 20101119

REACTIONS (2)
  - PREMATURE SEPARATION OF PLACENTA [None]
  - PREGNANCY WITH IMPLANT CONTRACEPTIVE [None]
